FAERS Safety Report 11875104 (Version 1)
Quarter: 2015Q4

REPORT INFORMATION
  Report Type: Spontaneous
  Country: US (occurrence: None)
  Receive Date: 20151228
  Receipt Date: 20151228
  Transmission Date: 20160305
  Serious: Yes (Hospitalization)
  Sender: FDA-Public Use
  Company Number: None

PATIENT
  Age: 57 Year
  Sex: Male

DRUGS (1)
  1. DEXAMETHASONE. [Suspect]
     Active Substance: DEXAMETHASONE
     Indication: NEUROSURGERY
     Dosage: OTHER
     Route: 048
     Dates: start: 20151016, end: 20151107

REACTIONS (4)
  - Polyuria [None]
  - Nocturia [None]
  - Hyperglycaemia [None]
  - Blood lactic acid abnormal [None]

NARRATIVE: CASE EVENT DATE: 20151106
